FAERS Safety Report 9681694 (Version 3)
Quarter: 2013Q4

REPORT INFORMATION
  Report Type: Spontaneous
  Country: US (occurrence: US)
  Receive Date: 20131111
  Receipt Date: 20131223
  Transmission Date: 20140711
  Serious: Yes (Hospitalization, Disabling, Other)
  Sender: FDA-Public Use
  Company Number: US-ELI_LILLY_AND_COMPANY-US201310010271

PATIENT
  Age: 63 Year
  Sex: Female
  Weight: 76 kg

DRUGS (6)
  1. ALIMTA [Suspect]
     Indication: LUNG CARCINOMA CELL TYPE UNSPECIFIED STAGE IV
     Dosage: 500 MG/M2, EVERY 3 WEEKS
     Route: 042
     Dates: start: 20131018, end: 20131018
  2. ALIMTA [Suspect]
     Indication: METASTASES TO BONE
  3. VITAMIN B12 [Concomitant]
     Dosage: 100 UG, UNK
     Route: 030
     Dates: start: 20121002
  4. FOLIC ACID [Concomitant]
     Dosage: 1 MG, UNK
     Route: 048
     Dates: start: 20121002
  5. CORTICOSTEROID NOS [Concomitant]
     Dosage: 4 MG, BID
     Route: 048
     Dates: start: 20120612
  6. CEFEPIME [Concomitant]
     Indication: WOUND TREATMENT

REACTIONS (8)
  - Renal failure acute [Not Recovered/Not Resolved]
  - Encephalopathy [Recovered/Resolved]
  - Confusional state [Unknown]
  - Off label use [Unknown]
  - Dehydration [Unknown]
  - Nausea [Unknown]
  - Vomiting [Unknown]
  - Oedema [Unknown]
